FAERS Safety Report 10587668 (Version 1)
Quarter: 2014Q4

REPORT INFORMATION
  Report Type: Spontaneous
  Country: US (occurrence: US)
  Receive Date: 20141117
  Receipt Date: 20141117
  Transmission Date: 20150529
  Serious: Yes (Other)
  Sender: FDA-Public Use
  Company Number: PHEH2014US022620

PATIENT
  Sex: Female

DRUGS (3)
  1. BOSUTINIB [Interacting]
     Active Substance: BOSUTINIB
     Indication: ACQUIRED GENE MUTATION
     Route: 065
  2. EXJADE [Suspect]
     Active Substance: DEFERASIROX
     Indication: MYELOFIBROSIS
     Dosage: 500 MG, QD AND INCREASE BY ONE PILL WEEKLY AS TOLERATED.
     Route: 065
  3. HYDREA [Concomitant]
     Active Substance: HYDROXYUREA
     Indication: SPLENOMEGALY
     Route: 065

REACTIONS (4)
  - Haemoglobin decreased [Recovering/Resolving]
  - Drug interaction [Unknown]
  - Pancytopenia [Recovering/Resolving]
  - Bone pain [Unknown]
